FAERS Safety Report 6081162-X (Version None)
Quarter: 2009Q1

REPORT INFORMATION
  Report Type: 
  Country: None (occurrence: None)
  Receive Date: 20090213
  Receipt Date: 20090129
  Transmission Date: 20090719
  Serious: Yes (Disabling)
  Sender: FDA-Public Use
  Company Number: JPI-P-005920

PATIENT
  Sex: 0

DRUGS (3)
  1. LUVOX [Suspect]
     Indication: DRUG EXPOSURE DURING PREGNANCY
     Dosage: SEE IMAGE
     Route: 064
     Dates: start: 20080425, end: 20080519
  2. LUVOX [Suspect]
     Indication: DRUG EXPOSURE DURING PREGNANCY
     Dosage: SEE IMAGE
     Route: 064
     Dates: start: 20080520, end: 20081013
  3. LUVOX [Suspect]
     Indication: DRUG EXPOSURE DURING PREGNANCY
     Dosage: SEE IMAGE
     Route: 064
     Dates: start: 20081014, end: 20081020

REACTIONS (3)
  - CEPHALO-PELVIC DISPROPORTION [None]
  - FOETAL DISORDER [None]
  - MATERNAL DRUGS AFFECTING FOETUS [None]
